FAERS Safety Report 4264650-8 (Version None)
Quarter: 2004Q1

REPORT INFORMATION
  Report Type: 
  Country: None (occurrence: None)
  Receive Date: 20040102
  Receipt Date: 20031216
  Transmission Date: 20041129
  Serious: Yes (Hospitalization, Other)
  Sender: FDA-Public Use
  Company Number: USA031151452

PATIENT
  Age: 79 Year
  Sex: Female
  Weight: 46 kg

DRUGS (6)
  1. FORTEO [Suspect]
     Indication: OSTEOPOROSIS
     Dosage: 20 UG/DAY
     Dates: start: 20030108
  2. DIGOXIN [Concomitant]
  3. COREG [Concomitant]
  4. ALTACE [Concomitant]
  5. CELEBREX [Concomitant]
  6. SULFASALAZINE [Concomitant]

REACTIONS (8)
  - AORTIC VALVE INCOMPETENCE [None]
  - CARDIAC FAILURE CONGESTIVE [None]
  - CATARACT OPERATION [None]
  - DIFFICULTY IN WALKING [None]
  - DIZZINESS [None]
  - PAIN IN EXTREMITY [None]
  - PHARMACEUTICAL PRODUCT COMPLAINT [None]
  - VERTIGO [None]
